FAERS Safety Report 6833797-1 (Version None)
Quarter: 2010Q3

REPORT INFORMATION
  Report Type: 
  Country: None (occurrence: None)
  Receive Date: 20100712
  Receipt Date: 20070402
  Transmission Date: 20110219
  Serious: No
  Sender: FDA-Public Use
  Company Number: US-PFIZER INC-2007027446

PATIENT
  Sex: Female
  Weight: 54.43 kg

DRUGS (6)
  1. CHANTIX [Suspect]
     Indication: SMOKING CESSATION THERAPY
     Dates: start: 20070330
  2. OMEPRAZOLE [Concomitant]
  3. ACETYLSALICYLIC ACID [Concomitant]
  4. ACETAMINOPHEN, ASPIRIN AND CAFFEINE [Concomitant]
     Indication: HEADACHE
  5. VICODIN [Concomitant]
     Indication: HEADACHE
  6. CEPHALEXIN [Concomitant]

REACTIONS (4)
  - ABDOMINAL PAIN UPPER [None]
  - ABNORMAL FAECES [None]
  - DIARRHOEA [None]
  - FLATULENCE [None]
